FAERS Safety Report 9351611 (Version 1)
Quarter: 2013Q2

REPORT INFORMATION
  Report Type: Spontaneous
  Country: FR (occurrence: FR)
  Receive Date: 20130617
  Receipt Date: 20130617
  Transmission Date: 20140414
  Serious: Yes (Hospitalization)
  Sender: FDA-Public Use
  Company Number: FR-B.I. PHARMACEUTICALS,INC./RIDGEFIELD-2013-FF-01644FF

PATIENT
  Age: 84 Year
  Sex: Male

DRUGS (4)
  1. PRADAXA [Suspect]
     Dosage: 220 MG
     Route: 048
     Dates: end: 201306
  2. CARDENSIEL [Concomitant]
  3. TRIATEC [Concomitant]
  4. LASILIX [Concomitant]

REACTIONS (2)
  - Cough [Not Recovered/Not Resolved]
  - Gastrooesophageal reflux disease [Not Recovered/Not Resolved]
